FAERS Safety Report 9995168 (Version 1)
Quarter: 2014Q1

REPORT INFORMATION
  Report Type: Spontaneous
  Country: IT (occurrence: None)
  Receive Date: 20140306
  Receipt Date: 20140306
  Transmission Date: 20141002
  Serious: Yes (Other)
  Sender: FDA-Public Use
  Company Number: FK201400710

PATIENT
  Age: 41 Year
  Sex: Female
  Weight: 47 kg

DRUGS (3)
  1. OXALIPLATIN (MANUFACTURER UNKNOWN) (OXALIPLATIN) (OXALIPLATIN) [Suspect]
     Indication: PANCREATIC CARCINOMA
     Dosage: NOT OTHERWISE SPECIFIED
     Route: 042
  2. IRINOTECAN HYDROCHLORIDE TRIHYDRATE [Concomitant]
  3. 1, 5-FLUOROURACIL [Concomitant]

REACTIONS (3)
  - Dyslalia [None]
  - Hyperhidrosis [None]
  - Laryngospasm [None]
